FAERS Safety Report 5768104-9 (Version None)
Quarter: 2008Q2

REPORT INFORMATION
  Report Type: 
  Country: None (occurrence: None)
  Receive Date: 20080606
  Receipt Date: 20080528
  Transmission Date: 20081010
  Serious: Yes (Hospitalization)
  Sender: FDA-Public Use
  Company Number: 6043220

PATIENT
  Age: 50 Year
  Sex: Male

DRUGS (17)
  1. BISOPROLOL FUMARATE [Suspect]
     Indication: DRUG USE FOR UNKNOWN INDICATION
     Dosage: 1 DOSAGE FORMS (1 DOSAGE FORMS, 1 D) ORAL
     Route: 048
     Dates: start: 20080417
  2. OMEPRAZOLE [Suspect]
     Indication: DRUG USE FOR UNKNOWN INDICATION
     Dosage: 1 DOSAGE FORMS (1 DOSAGE FORMS, 1 D) ORAL
     Route: 048
     Dates: start: 20080413, end: 20080413
  3. VALSARTAN [Suspect]
     Indication: HYPERTENSION
     Dosage: 40 MG (40 MG, 1 D) ORAL
     Route: 048
  4. INIPOMP (TABLET) (PANTOPRAZOLE) [Suspect]
     Indication: DRUG USE FOR UNKNOWN INDICATION
     Dosage: 1 DOSAGE FORMS (1 DOSAGE FORMS, 1 D) ORAL
     Route: 048
     Dates: start: 20080414
  5. ESIDRIX [Suspect]
     Indication: HYPERTENSION
     Dosage: 1 DOSAGE FORMS (1 DOSAGE FORMS, 1 D) ORAL
     Route: 048
  6. DI-ANTALVIC (CAPSULE) (PARACETAMOL, DEXTROPROPOXYPHENE) [Suspect]
     Indication: PAIN
     Dosage: 1 DOSAGE FORMS (1 DOSAGE FORMS, 1 D) ORAL
     Route: 048
     Dates: start: 20080414
  7. PLAVIX [Suspect]
     Indication: DRUG USE FOR UNKNOWN INDICATION
     Dosage: 1 DOSAGE FORMS (1 DOSAGE FORMS, 1 D) ORAL
     Route: 048
     Dates: start: 20080417
  8. DESLORATADINE [Suspect]
     Indication: HYPERSENSITIVITY
     Dosage: 1 DOSAGE FORMS (1 DOSAGE FORMS, 1 D) ORAL
     Route: 048
     Dates: start: 20080419
  9. HUMALOG [Concomitant]
  10. ALLOPURINOL [Concomitant]
  11. POTASSIUM CHLORIDE [Concomitant]
  12. AMLODIPINE BESYLATE [Concomitant]
  13. LASIX [Concomitant]
  14. RANITIDINE [Concomitant]
  15. ACETAMINOPHEN [Concomitant]
  16. LACTULOSE [Concomitant]
  17. LEVOFLOXACIN [Concomitant]

REACTIONS (8)
  - CONDITION AGGRAVATED [None]
  - DYSPNOEA [None]
  - ERYSIPELAS [None]
  - IRON DEFICIENCY ANAEMIA [None]
  - LEUKOPENIA [None]
  - NEUTROPENIA [None]
  - PULMONARY ARTERIAL HYPERTENSION [None]
  - RENAL FAILURE [None]
